FAERS Safety Report 4438283-4 (Version None)
Quarter: 2004Q3

REPORT INFORMATION
  Report Type: 
  Country: None (occurrence: None)
  Receive Date: 20040831
  Receipt Date: 20040708
  Transmission Date: 20050211
  Serious: No
  Sender: FDA-Public Use
  Company Number: US-GLAXOSMITHKLINE-A0517439A

PATIENT
  Age: 27 Year
  Sex: Female

DRUGS (2)
  1. WELLBUTRIN XL [Suspect]
     Indication: DEPRESSION
     Dosage: 300MG PER DAY
     Route: 048
     Dates: start: 20040601, end: 20040707
  2. YASMIN [Concomitant]

REACTIONS (4)
  - ARTHRITIS [None]
  - JOINT SWELLING [None]
  - OEDEMA PERIPHERAL [None]
  - URTICARIA [None]
